FAERS Safety Report 6383686-4 (Version None)
Quarter: 2009Q3

REPORT INFORMATION
  Report Type: 
  Country: None (occurrence: None)
  Receive Date: 20090929
  Receipt Date: 20090929
  Transmission Date: 20100115
  Serious: Yes (Life-Threatening)
  Sender: FDA-Public Use
  Company Number: None

PATIENT
  Age: 9 Year
  Sex: Male
  Weight: 26.989 kg

DRUGS (2)
  1. PROAIR HFA [Suspect]
     Indication: WHEEZING
     Dosage: 2 PUFFS Q 3 TO 4 HOURS INHAL
     Dates: start: 20090912, end: 20090913
  2. OPTICHAMBER WITH MEDIUM MASK RESPIRONICS [Suspect]
     Indication: WHEEZING
     Dates: start: 20090912, end: 20090913

REACTIONS (3)
  - LIP SWELLING [None]
  - NASOPHARYNGITIS [None]
  - WHEEZING [None]
